FAERS Safety Report 9194430 (Version 1)
Quarter: 2013Q1

REPORT INFORMATION
  Report Type: Spontaneous
  Country: US (occurrence: US)
  Receive Date: 20130327
  Receipt Date: 20130327
  Transmission Date: 20140127
  Serious: Yes (Other)
  Sender: FDA-Public Use
  Company Number: US-PFIZER INC-2013097529

PATIENT
  Age: 73 Year
  Sex: Male
  Weight: 73.92 kg

DRUGS (7)
  1. ATENOLOL [Suspect]
     Indication: HEART RATE INCREASED
     Dosage: UNK
     Route: 048
  2. CRESTOR [Suspect]
     Indication: BLOOD CHOLESTEROL INCREASED
     Dosage: 10 MG, DAILY
     Route: 048
     Dates: end: 2012
  3. CRESTOR [Suspect]
     Dosage: 10 MG, ALTERNATE DAY
     Route: 048
     Dates: start: 2012, end: 2012
  4. CRESTOR [Suspect]
     Dosage: 10 MG, ALTERNATE DAY
     Route: 048
     Dates: start: 201212
  5. RANITIDINE [Suspect]
     Indication: BARRETT^S OESOPHAGUS
     Dosage: 300 MG, DAILY
  6. ZETIA [Concomitant]
     Indication: BLOOD CHOLESTEROL INCREASED
     Dosage: 10 MG, DAILY
     Route: 048
  7. ASPIRIN [Concomitant]
     Indication: ANTICOAGULANT THERAPY
     Dosage: 81 MG, DAILY
     Route: 048

REACTIONS (4)
  - Aortic aneurysm [Unknown]
  - Barrett^s oesophagus [Unknown]
  - Muscle spasms [Recovered/Resolved]
  - Muscle spasms [Recovered/Resolved]
